FAERS Safety Report 4331250-0 (Version None)
Quarter: 2004Q1

REPORT INFORMATION
  Report Type: 
  Country: None (occurrence: None)
  Receive Date: 20040331
  Receipt Date: 20040319
  Transmission Date: 20041129
  Serious: Yes (Hospitalization)
  Sender: FDA-Public Use
  Company Number: 04P-144-0247927-00

PATIENT
  Age: 57 Year
  Sex: Male

DRUGS (15)
  1. ERYTHROMYCIN [Suspect]
     Dosage: SEE IMAGE
     Dates: start: 19921203
  2. ERYTHROMYCIN [Suspect]
     Dosage: SEE IMAGE
     Dates: start: 19930329
  3. ERYTHROMYCIN [Suspect]
     Dosage: SEE IMAGE
     Dates: start: 19930428
  4. ERYTHROMYCIN [Suspect]
     Dosage: SEE IMAGE
     Dates: start: 19960101
  5. ERYTHROMYCIN [Suspect]
     Dosage: SEE IMAGE
     Dates: start: 20001218
  6. ERYTHROMYCIN [Suspect]
     Dosage: SEE IMAGE
     Dates: start: 20010803
  7. ERYTHROMYCIN [Suspect]
     Dosage: SEE IMAGE
     Dates: start: 20020820
  8. OXYTETRACYCLINE [Concomitant]
  9. BETAMETHASONE VALERATE [Concomitant]
  10. AMOXICILLIN [Concomitant]
  11. DOXYCLINE [Concomitant]
  12. FUSIDATE SODIUM [Concomitant]
  13. QUINODERM [Concomitant]
  14. DAKTACORT CREAM (DAKTACORT) [Concomitant]
  15. DICLOFENAC SODIUM [Concomitant]

REACTIONS (3)
  - GASTROINTESTINAL HAEMORRHAGE [None]
  - HEPATIC CIRRHOSIS [None]
  - SKIN DISORDER [None]
